FAERS Safety Report 17001175 (Version 1)
Quarter: 2019Q4

REPORT INFORMATION
  Report Type: Spontaneous
  Country: US (occurrence: US)
  Receive Date: 20191106
  Receipt Date: 20191106
  Transmission Date: 20200122
  Serious: No
  Sender: FDA-Public Use
  Company Number: US-PURDUE-USA-2019-0148073

PATIENT
  Age: 48 Year
  Sex: Female

DRUGS (1)
  1. MS CONTIN [Suspect]
     Active Substance: MORPHINE SULFATE
     Indication: PROCEDURAL PAIN
     Dosage: 30 MG, BID
     Route: 048
     Dates: start: 20190820

REACTIONS (3)
  - Vomiting [Unknown]
  - Product residue present [Unknown]
  - Nausea [Unknown]

NARRATIVE: CASE EVENT DATE: 20190820
